FAERS Safety Report 25892139 (Version 1)
Quarter: 2025Q4

REPORT INFORMATION
  Report Type: Report from Study
  Country: US (occurrence: US)
  Receive Date: 20251007
  Receipt Date: 20251007
  Transmission Date: 20260117
  Serious: Yes (Death, Other)
  Sender: UCB
  Company Number: US-UCBSA-2025060045

PATIENT
  Sex: Female

DRUGS (1)
  1. FINTEPLA [Suspect]
     Active Substance: FENFLURAMINE
     Indication: Lennox-Gastaut syndrome
     Dosage: 3.5 MILLILITER, 2X/DAY (BID)
     Route: 048
     Dates: end: 20250910

REACTIONS (3)
  - Tuberous sclerosis complex [Fatal]
  - End stage renal disease [Fatal]
  - Angiomyolipoma [Fatal]
